FAERS Safety Report 7792461-5 (Version None)
Quarter: 2011Q4

REPORT INFORMATION
  Report Type: 
  Country: None (occurrence: None)
  Receive Date: 20111003
  Receipt Date: 20110920
  Transmission Date: 20120403
  Serious: Yes (Hospitalization)
  Sender: FDA-Public Use
  Company Number: US-ELI_LILLY_AND_COMPANY-US201108000564

PATIENT
  Sex: Female
  Weight: 58.957 kg

DRUGS (3)
  1. OMEPRAZOLE [Concomitant]
  2. FORTEO [Suspect]
     Dosage: 20 UG, QD
     Route: 058
     Dates: start: 20110601
  3. FORTEO [Suspect]
     Indication: OSTEOPOROSIS
     Dosage: 20 UG, QD
     Route: 058
     Dates: start: 20110408, end: 20110501

REACTIONS (3)
  - HYPOKALAEMIA [None]
  - HYPOMAGNESAEMIA [None]
  - MUSCLE SPASMS [None]
